FAERS Safety Report 9995093 (Version 1)
Quarter: 2014Q1

REPORT INFORMATION
  Report Type: Spontaneous
  Country: FR (occurrence: FR)
  Receive Date: 20140311
  Receipt Date: 20140311
  Transmission Date: 20141002
  Serious: Yes (Disabling, Other)
  Sender: FDA-Public Use
  Company Number: FR-ELI_LILLY_AND_COMPANY-FR201403000196

PATIENT
  Age: 61 Year
  Sex: Female
  Weight: 38 kg

DRUGS (1)
  1. ZYPREXA [Suspect]
     Indication: PSYCHOTIC DISORDER
     Dosage: 10 MG, QD
     Route: 048
     Dates: end: 2013

REACTIONS (2)
  - Portal vein cavernous transformation [Unknown]
  - Mesenteric vein thrombosis [Recovered/Resolved with Sequelae]
